FAERS Safety Report 11526244 (Version 1)
Quarter: 2015Q3

REPORT INFORMATION
  Report Type: Spontaneous
  Country: PT (occurrence: PT)
  Receive Date: 20150919
  Receipt Date: 20150919
  Transmission Date: 20151125
  Serious: Yes (Other)
  Sender: FDA-Public Use
  Company Number: PT-SUN PHARMACEUTICAL INDUSTRIES LTD-2015R1-103277

PATIENT
  Age: 37 Year
  Sex: Female

DRUGS (4)
  1. CIPROFLOXACIN. [Concomitant]
     Active Substance: CIPROFLOXACIN
     Indication: PROPHYLAXIS
     Dosage: 400 MG, DAILY
     Route: 065
  2. FOLIC ACID. [Concomitant]
     Active Substance: FOLIC ACID
     Indication: PRODUCT USED FOR UNKNOWN INDICATION
     Dosage: UNK
     Route: 065
  3. VITAMIN B12 [Concomitant]
     Active Substance: CYANOCOBALAMIN
     Indication: PRODUCT USED FOR UNKNOWN INDICATION
     Dosage: UNK
     Route: 065
  4. METRONIDAZOLE. [Suspect]
     Active Substance: METRONIDAZOLE
     Indication: PROPHYLAXIS
     Dosage: 1500 MG, DAILY
     Route: 065

REACTIONS (3)
  - Toxicity to various agents [Recovered/Resolved with Sequelae]
  - Cerebellar syndrome [Recovered/Resolved with Sequelae]
  - Axonal neuropathy [Recovered/Resolved with Sequelae]
